FAERS Safety Report 12153184 (Version 2)
Quarter: 2016Q1

REPORT INFORMATION
  Report Type: Spontaneous
  Country: US (occurrence: US)
  Receive Date: 20160305
  Receipt Date: 20160316
  Transmission Date: 20160526
  Serious: Yes (Other)
  Sender: FDA-Public Use
  Company Number: US-SUCAMPO PHARMACEUTICALS, INC.-SPI201600194

PATIENT
  Age: 22 Year
  Sex: Female
  Weight: 56.69 kg

DRUGS (7)
  1. UNKNOWN [Concomitant]
     Active Substance: UNSPECIFIED INGREDIENT
  2. AMITIZA [Suspect]
     Active Substance: LUBIPROSTONE
     Indication: CONSTIPATION
     Dosage: 8 MCG, QD
     Route: 048
     Dates: start: 20160221, end: 20160222
  3. UNKNOWN [Concomitant]
     Active Substance: UNSPECIFIED INGREDIENT
  4. KARIVA [Concomitant]
     Active Substance: DESOGESTREL\ETHINYL ESTRADIOL
  5. PROVENTIL HFA [Concomitant]
     Active Substance: ALBUTEROL SULFATE
  6. ALAVERT ALLERGY [Concomitant]
     Active Substance: LORATADINE
  7. UNKNOWN [Concomitant]
     Active Substance: UNSPECIFIED INGREDIENT

REACTIONS (3)
  - Pharyngeal oedema [Recovered/Resolved]
  - Dyspnoea [Recovered/Resolved]
  - Hypersensitivity [Recovered/Resolved]

NARRATIVE: CASE EVENT DATE: 20160222
